FAERS Safety Report 16783740 (Version 1)
Quarter: 2019Q3

REPORT INFORMATION
  Report Type: Report from Study
  Country: None (occurrence: US)
  Receive Date: 20190908
  Receipt Date: 20190908
  Transmission Date: 20191005
  Serious: Yes (Hospitalization)
  Sender: FDA-Public Use
  Company Number: US-ABBVIE-19K-163-2911915-00

PATIENT
  Age: 74 Year
  Sex: Female

DRUGS (1)
  1. HUMIRA [Suspect]
     Active Substance: ADALIMUMAB
     Indication: RHEUMATOID ARTHRITIS
     Route: 058

REACTIONS (8)
  - Haematochezia [Unknown]
  - Fall [Unknown]
  - Blood glucose increased [Unknown]
  - Disorientation [Unknown]
  - Urinary tract infection [Unknown]
  - Renal disorder [Unknown]
  - Atrial fibrillation [Unknown]
  - Gait inability [Unknown]

NARRATIVE: CASE EVENT DATE: 201908
